FAERS Safety Report 25707039 (Version 1)
Quarter: 2025Q3

REPORT INFORMATION
  Report Type: Spontaneous
  Country: EU (occurrence: EU)
  Receive Date: 20250820
  Receipt Date: 20250820
  Transmission Date: 20251021
  Serious: Yes (Hospitalization, Other)
  Sender: INSUD PHARMA
  Company Number: EU-INSUD PHARMA-2508ES06680

PATIENT

DRUGS (8)
  1. NUVESSA [Suspect]
     Active Substance: METRONIDAZOLE
     Indication: Abscess jaw
     Dosage: 500 MG EVERY 8 HOURS
     Route: 048
  2. AMOXICILLIN [Concomitant]
     Active Substance: AMOXICILLIN
     Indication: Abscess jaw
     Dosage: 1 G EVERY 8 HOURS
  3. ENALAPRIL [Concomitant]
     Active Substance: ENALAPRIL
     Indication: Hypertension
  4. HYDROCHLOROTHIAZIDE [Concomitant]
     Active Substance: HYDROCHLOROTHIAZIDE
     Indication: Hypertension
  5. SIMVASTATIN [Concomitant]
     Active Substance: SIMVASTATIN
     Indication: Dyslipidaemia
  6. LEFLUNOMIDE [Concomitant]
     Active Substance: LEFLUNOMIDE
     Indication: Rheumatoid arthritis
  7. HYDROXYCHLOROQUINE [Concomitant]
     Active Substance: HYDROXYCHLOROQUINE
     Indication: Rheumatoid arthritis
  8. PREDNISONE [Concomitant]
     Active Substance: PREDNISONE
     Indication: Rheumatoid arthritis

REACTIONS (17)
  - Neurotoxicity [Recovering/Resolving]
  - Paraesthesia [Not Recovered/Not Resolved]
  - Pain in extremity [Recovering/Resolving]
  - Bradyphrenia [Recovering/Resolving]
  - Disorientation [Recovering/Resolving]
  - Gait disturbance [Recovering/Resolving]
  - Dysarthria [Recovered/Resolved]
  - Vomiting [Recovered/Resolved]
  - Dysphagia [Recovering/Resolving]
  - Nervous system disorder [Recovering/Resolving]
  - Neuropathy peripheral [Not Recovered/Not Resolved]
  - Somnolence [Recovered/Resolved]
  - Dizziness [Recovered/Resolved]
  - Nausea [Recovered/Resolved]
  - Burning sensation [Not Recovered/Not Resolved]
  - Condition aggravated [Not Recovered/Not Resolved]
  - Peripheral sensory neuropathy [Not Recovered/Not Resolved]
